FAERS Safety Report 4806432-1 (Version None)
Quarter: 2005Q4

REPORT INFORMATION
  Report Type: 
  Country: None (occurrence: None)
  Receive Date: 20051019
  Receipt Date: 20051019
  Transmission Date: 20060501
  Serious: Yes (Hospitalization)
  Sender: FDA-Public Use
  Company Number: None

PATIENT
  Age: 69 Year
  Sex: Male
  Weight: 84.8226 kg

DRUGS (13)
  1. METHOTREXATE [Suspect]
     Indication: RHEUMATOID ARTHRITIS
     Dosage: 8 TABLETS-20MG-   EVERY WEEK    PO  (DURATION:  ALMOST 3 YEARS)
     Route: 048
     Dates: start: 20021001, end: 20050722
  2. CITALOPRAM [Concomitant]
  3. DIGOXIN [Concomitant]
  4. DOCUSATE SODIUM [Concomitant]
  5. ENOXAPARIN SODIUM [Concomitant]
  6. FLUVASTATIN [Concomitant]
  7. FUROSEMIDE [Concomitant]
  8. NITROGLYCERIN [Concomitant]
  9. OMEPRAZOLE [Concomitant]
  10. PREDNISONE TAB [Concomitant]
  11. SPIRONOLACTONE [Concomitant]
  12. TRAMADOL HCL [Concomitant]
  13. WARFARIN [Concomitant]

REACTIONS (6)
  - ABDOMINAL PAIN UPPER [None]
  - ASTHENIA [None]
  - INTERSTITIAL LUNG DISEASE [None]
  - METASTATIC NEOPLASM [None]
  - OXYGEN SATURATION DECREASED [None]
  - PULMONARY FUNCTION TEST ABNORMAL [None]
